FAERS Safety Report 4609696-2 (Version None)
Quarter: 2005Q1

REPORT INFORMATION
  Report Type: 
  Country: None (occurrence: None)
  Receive Date: 20050314
  Receipt Date: 20050308
  Transmission Date: 20050727
  Serious: Yes (Life-Threatening, Hospitalization)
  Sender: FDA-Public Use
  Company Number: 2005AC00403

PATIENT
  Age: 47 Year
  Sex: Male

DRUGS (3)
  1. RAMIPRIL [Suspect]
     Dosage: 10 MG DAILY PO
     Route: 048
     Dates: start: 20020901, end: 20050129
  2. ATACAND [Suspect]
     Indication: HYPERTENSION
     Dosage: 16 MG DAILY PO
     Route: 048
     Dates: start: 20000101, end: 20050129
  3. NEBILET [Concomitant]

REACTIONS (2)
  - FATIGUE [None]
  - HYPERTENSION [None]
